FAERS Safety Report 18821394 (Version 1)
Quarter: 2021Q1

REPORT INFORMATION
  Report Type: Spontaneous
  Country: US (occurrence: US)
  Receive Date: 20210201
  Receipt Date: 20210201
  Transmission Date: 20210419
  Serious: Yes (Hospitalization)
  Sender: FDA-Public Use
  Company Number: None

PATIENT
  Age: 74 Year
  Sex: Male
  Weight: 73 kg

DRUGS (1)
  1. VANCOMYCIN (VANCOMYCIN HCL 500MG/VIL INJ) [Suspect]
     Active Substance: VANCOMYCIN HYDROCHLORIDE
     Route: 042
     Dates: start: 20200707, end: 20200721

REACTIONS (9)
  - Blood urea increased [None]
  - Renal impairment [None]
  - Antibiotic level above therapeutic [None]
  - Blood creatinine increased [None]
  - Staphylococcal bacteraemia [None]
  - Pain [None]
  - Endocarditis [None]
  - Fatigue [None]
  - Acute kidney injury [None]

NARRATIVE: CASE EVENT DATE: 20200720
